FAERS Safety Report 24594688 (Version 2)
Quarter: 2025Q2

REPORT INFORMATION
  Report Type: Spontaneous
  Country: US (occurrence: US)
  Receive Date: 20241108
  Receipt Date: 20250408
  Transmission Date: 20250717
  Serious: No
  Sender: PFIZER
  Company Number: US-PFIZER INC-202400295842

PATIENT
  Age: 68 Year
  Sex: Female

DRUGS (1)
  1. XELJANZ XR [Suspect]
     Active Substance: TOFACITINIB CITRATE

REACTIONS (2)
  - Malaise [Unknown]
  - Movement disorder [Unknown]
